FAERS Safety Report 11629561 (Version 2)
Quarter: 2016Q2

REPORT INFORMATION
  Report Type: Spontaneous
  Country: US (occurrence: US)
  Receive Date: 20151014
  Receipt Date: 20160526
  Transmission Date: 20160815
  Serious: Yes (Hospitalization, Other)
  Sender: FDA-Public Use
  Company Number: US-BAYER-2015-442296

PATIENT
  Age: 22 Year
  Sex: Female
  Weight: 95.69 kg

DRUGS (1)
  1. MIRENA [Suspect]
     Active Substance: LEVONORGESTREL
     Indication: CONTRACEPTION
     Dosage: 20 MCG/24HR, CONT
     Route: 015
     Dates: start: 20111006, end: 20121009

REACTIONS (16)
  - Injury [None]
  - Scar [None]
  - Intra-uterine contraceptive device removal [None]
  - Anxiety [None]
  - Stress [None]
  - Uterine perforation [None]
  - Back pain [None]
  - Depression [None]
  - Activities of daily living impaired [None]
  - Device failure [None]
  - Menorrhagia [None]
  - Device issue [None]
  - Pain [None]
  - Emotional distress [None]
  - Procedural pain [None]
  - Psychological trauma [None]

NARRATIVE: CASE EVENT DATE: 201207
